FAERS Safety Report 25119394 (Version 3)
Quarter: 2025Q3

REPORT INFORMATION
  Report Type: Report from Study
  Country: US (occurrence: US)
  Receive Date: 20250325
  Receipt Date: 20250809
  Transmission Date: 20251021
  Serious: Yes (Other)
  Sender: ALEXION PHARMACEUTICALS
  Company Number: US-AstraZeneca-CH-00829389A

PATIENT
  Sex: Male

DRUGS (2)
  1. ULTOMIRIS [Suspect]
     Active Substance: RAVULIZUMAB-CWVZ
     Indication: Myasthenia gravis
     Route: 065
  2. PREDNISONE [Suspect]
     Active Substance: PREDNISONE
     Route: 065

REACTIONS (9)
  - Diabetes mellitus [Unknown]
  - Fatigue [Unknown]
  - Coordination abnormal [Unknown]
  - Dysarthria [Unknown]
  - Cough [Unknown]
  - Contusion [Unknown]
  - Skin atrophy [Unknown]
  - Dysphagia [Unknown]
  - Therapeutic response shortened [Unknown]
